FAERS Safety Report 4592881-6 (Version None)
Quarter: 2005Q1

REPORT INFORMATION
  Report Type: 
  Country: None (occurrence: None)
  Receive Date: 20050228
  Receipt Date: 20050216
  Transmission Date: 20050727
  Serious: Yes (Other)
  Sender: FDA-Public Use
  Company Number: PHBS2005CN02577

PATIENT
  Age: 40 Year
  Sex: Male

DRUGS (6)
  1. METHOTREXATE [Suspect]
     Indication: BONE MARROW TRANSPLANT
  2. STEROIDS NOS [Suspect]
     Indication: BONE MARROW TRANSPLANT
  3. AZATHIOPRINE [Suspect]
     Indication: BONE MARROW TRANSPLANT
  4. BUSULPHAN [Concomitant]
     Indication: BONE MARROW TRANSPLANT
  5. CYCLOPHOSPHAMIDE [Concomitant]
     Indication: BONE MARROW TRANSPLANT
  6. CYCLOSPORINE [Suspect]
     Indication: BONE MARROW TRANSPLANT
     Route: 065
     Dates: start: 19960801

REACTIONS (9)
  - ALANINE AMINOTRANSFERASE INCREASED [None]
  - ASPARTATE AMINOTRANSFERASE INCREASED [None]
  - CYSTITIS HAEMORRHAGIC [None]
  - CYTOMEGALOVIRUS VIRAEMIA [None]
  - GRAFT VERSUS HOST DISEASE [None]
  - HBV DNA INCREASED [None]
  - HEPATITIS B [None]
  - HEPATITIS B SURFACE ANTIGEN POSITIVE [None]
  - HEPATITIS CHRONIC ACTIVE [None]
